FAERS Safety Report 10099975 (Version 2)
Quarter: 2014Q3

REPORT INFORMATION
  Report Type: Spontaneous
  Country: SE (occurrence: SE)
  Receive Date: 20140423
  Receipt Date: 20140709
  Transmission Date: 20150326
  Serious: Yes (Hospitalization, Other)
  Sender: FDA-Public Use
  Company Number: SE-ELI_LILLY_AND_COMPANY-SE201404004825

PATIENT
  Age: 31 Year
  Sex: Male
  Weight: 73 kg

DRUGS (1)
  1. ZYPADHERA [Suspect]
     Active Substance: OLANZAPINE PAMOATE
     Indication: SCHIZOPHRENIA, PARANOID TYPE
     Dosage: 150 MG, 2/M
     Route: 030
     Dates: start: 20140206, end: 20140227

REACTIONS (6)
  - Gait disturbance [Unknown]
  - C-reactive protein increased [Unknown]
  - Subcutaneous abscess [Recovered/Resolved]
  - Thrombophlebitis superficial [Recovered/Resolved]
  - Injection site pain [Recovered/Resolved]
  - Staphylococcal abscess [Unknown]

NARRATIVE: CASE EVENT DATE: 20140220
